FAERS Safety Report 5155281-6 (Version None)
Quarter: 2006Q4

REPORT INFORMATION
  Report Type: 
  Country: None (occurrence: None)
  Receive Date: 20061121
  Receipt Date: 20061109
  Transmission Date: 20070319
  Serious: Yes (Hospitalization)
  Sender: FDA-Public Use
  Company Number: FR-AVENTIS-200613962FR

PATIENT
  Age: 67 Year
  Sex: Male
  Weight: 80 kg

DRUGS (8)
  1. CLAFORAN                           /00497602/ [Suspect]
     Indication: ACUTE RESPIRATORY DISTRESS SYNDROME
     Route: 042
     Dates: start: 20060926, end: 20061010
  2. TARGOCID [Suspect]
     Indication: ACUTE RESPIRATORY DISTRESS SYNDROME
     Route: 042
     Dates: start: 20060926, end: 20061010
  3. CORDARONE                          /00133101/ [Suspect]
     Indication: ATRIAL FIBRILLATION
     Route: 042
     Dates: start: 20060930
  4. CORDARONE                          /00133101/ [Suspect]
     Route: 042
  5. CORDARONE [Suspect]
     Route: 048
     Dates: end: 20061005
  6. VECTARION [Suspect]
     Dates: start: 20060930, end: 20061013
  7. LARGACTIL                          /00011901/ [Suspect]
     Route: 042
     Dates: start: 20061008, end: 20061013
  8. GENTAMICIN [Suspect]
     Indication: ACUTE RESPIRATORY DISTRESS SYNDROME
     Route: 042
     Dates: start: 20060926, end: 20061010

REACTIONS (4)
  - CHOLESTASIS [None]
  - CYTOLYTIC HEPATITIS [None]
  - HEPATITIS [None]
  - JAUNDICE [None]
